FAERS Safety Report 7326464-1 (Version None)
Quarter: 2011Q1

REPORT INFORMATION
  Report Type: 
  Country: None (occurrence: None)
  Receive Date: 20110302
  Receipt Date: 20110224
  Transmission Date: 20110831
  Serious: Yes (Hospitalization)
  Sender: FDA-Public Use
  Company Number: GB-JNJFOC-20110106916

PATIENT
  Sex: Male

DRUGS (3)
  1. PAROXETINE [Suspect]
     Indication: OBSESSIVE-COMPULSIVE DISORDER
     Route: 065
  2. DESMOPRESSIN ACETATE [Suspect]
     Indication: ILL-DEFINED DISORDER
     Route: 065
  3. RISPERDONE [Suspect]
     Indication: OBSESSIVE-COMPULSIVE DISORDER
     Route: 065

REACTIONS (8)
  - EPILEPSY [None]
  - PSYCHOTIC DISORDER [None]
  - PYREXIA [None]
  - OFF LABEL USE [None]
  - VOMITING [None]
  - PAIN [None]
  - PETECHIAE [None]
  - DRUG INTERACTION [None]
